FAERS Safety Report 8067900-5 (Version None)
Quarter: 2012Q1

REPORT INFORMATION
  Report Type: 
  Country: None (occurrence: None)
  Receive Date: 20120124
  Receipt Date: 20110831
  Transmission Date: 20120608
  Serious: No
  Sender: FDA-Public Use
  Company Number: US-AMGEN-USASP2011031053

PATIENT
  Age: 53 Year
  Sex: Female
  Weight: 83.9 kg

DRUGS (10)
  1. OMEPRAZOLE [Concomitant]
  2. TOPAMAX [Concomitant]
  3. ESTRACE [Concomitant]
  4. PROLIA [Suspect]
     Indication: OSTEOPOROSIS POSTMENOPAUSAL
     Dosage: 60 MG, Q6MO
     Route: 058
     Dates: start: 20110325, end: 20110401
  5. LEXAPRO [Concomitant]
  6. VICODIN [Concomitant]
  7. ADVICOR [Concomitant]
  8. ACIPHEX [Concomitant]
  9. BUTALBITAL [Concomitant]
  10. AMBIEN CR [Concomitant]

REACTIONS (4)
  - PAIN IN EXTREMITY [None]
  - INFLUENZA LIKE ILLNESS [None]
  - INJECTION SITE RASH [None]
  - BACK PAIN [None]
